FAERS Safety Report 14931069 (Version 1)
Quarter: 2018Q2

REPORT INFORMATION
  Report Type: Spontaneous
  Country: DE (occurrence: DE)
  Receive Date: 20180524
  Receipt Date: 20180524
  Transmission Date: 20180711
  Serious: No
  Sender: FDA-Public Use
  Company Number: DE-LUPIN PHARMACEUTICALS INC.-2017-02526

PATIENT
  Age: 75 Year
  Sex: Male

DRUGS (6)
  1. METEX                              /00113802/ [Concomitant]
     Active Substance: METHOTREXATE SODIUM
     Indication: PRODUCT USED FOR UNKNOWN INDICATION
     Dosage: UNK
     Route: 065
  2. QUETIAPIN-HORMOSAN 25 MG FILMTABLETTEN [Suspect]
     Active Substance: QUETIAPINE
     Indication: DEMENTIA WITH LEWY BODIES
     Dosage: 25 MG, BID (AT MORNING AND EVENING)
     Route: 048
     Dates: start: 201701
  3. LIDOCAINE. [Concomitant]
     Active Substance: LIDOCAINE
     Indication: PRODUCT USED FOR UNKNOWN INDICATION
     Dosage: UNK
     Route: 065
     Dates: start: 20170510
  4. QUETIAPIN-HORMOSAN 50 MG RETARDTABLETTEN [Suspect]
     Active Substance: QUETIAPINE FUMARATE
     Indication: DEMENTIA WITH LEWY BODIES
     Dosage: 50 MG, BID (AT MIDDAY AND EVENING)
     Route: 048
     Dates: start: 201701
  5. CORTISONE [Concomitant]
     Active Substance: CORTISONE\HYDROCORTISONE
     Indication: PRODUCT USED FOR UNKNOWN INDICATION
     Dosage: UNK
     Route: 065
  6. PANTOPRAZOLE [Concomitant]
     Active Substance: PANTOPRAZOLE
     Indication: PRODUCT USED FOR UNKNOWN INDICATION
     Dosage: UNK
     Route: 065

REACTIONS (3)
  - Confusional state [Not Recovered/Not Resolved]
  - Drug ineffective for unapproved indication [Unknown]
  - Product use in unapproved indication [Unknown]

NARRATIVE: CASE EVENT DATE: 20170510
